FAERS Safety Report 25649772 (Version 1)
Quarter: 2025Q3

REPORT INFORMATION
  Report Type: Spontaneous
  Country: US (occurrence: None)
  Receive Date: 20250806
  Receipt Date: 20250806
  Transmission Date: 20251020
  Serious: Yes (Other)
  Sender: FDA-CTU
  Company Number: None

PATIENT
  Age: 58 Year
  Sex: Female

DRUGS (1)
  1. ENBREL [Suspect]
     Active Substance: ETANERCEPT
     Indication: Psoriatic arthropathy
     Dosage: 50 MG/ML WEEKLY SUBCUTANEOUS
     Route: 058
     Dates: start: 20250718, end: 20250801

REACTIONS (3)
  - Rash [None]
  - Skin lesion [None]
  - Therapy cessation [None]
